FAERS Safety Report 10679939 (Version 3)
Quarter: 2015Q1

REPORT INFORMATION
  Report Type: Spontaneous
  Country: CN (occurrence: CN)
  Receive Date: 20141229
  Receipt Date: 20150323
  Transmission Date: 20150720
  Serious: Yes (Hospitalization)
  Sender: FDA-Public Use
  Company Number: CN-ASTRAZENECA-2014SE91602

PATIENT
  Age: 40 Year
  Sex: Male

DRUGS (3)
  1. BETALOC ZOK [Suspect]
     Active Substance: METOPROLOL SUCCINATE
     Indication: HYPERTENSION
     Route: 048
     Dates: end: 201502
  2. BETALOC ZOK [Suspect]
     Active Substance: METOPROLOL SUCCINATE
     Indication: HYPERTENSION
     Route: 048
     Dates: start: 2014
  3. AMLODIPINE MESYLATE [Concomitant]
     Active Substance: AMLODIPINE MESYLATE
     Dosage: DOSE FLEXIBLE.

REACTIONS (11)
  - Pneumonia [Unknown]
  - Chest discomfort [Recovered/Resolved]
  - Chest pain [Recovered/Resolved]
  - Asthenia [Recovered/Resolved]
  - Heart rate decreased [Unknown]
  - Fatigue [Recovered/Resolved]
  - Therapeutic response unexpected [Unknown]
  - Intentional product misuse [Unknown]
  - Blood pressure increased [Unknown]
  - Drug dependence [Unknown]
  - Dizziness [Recovered/Resolved]
